FAERS Safety Report 17917392 (Version 2)
Quarter: 2020Q2

REPORT INFORMATION
  Report Type: Spontaneous
  Country: FR (occurrence: FR)
  Receive Date: 20200619
  Receipt Date: 20200624
  Transmission Date: 20200714
  Serious: Yes (Death, Other)
  Sender: FDA-Public Use
  Company Number: NVSC2020FR168967

PATIENT

DRUGS (8)
  1. FOSCAVIR [Suspect]
     Active Substance: FOSCARNET SODIUM
     Indication: DISEASE RECURRENCE
     Dosage: UNK
     Route: 042
     Dates: start: 20180228, end: 20180315
  2. DEFITELIO [Suspect]
     Active Substance: DEFIBROTIDE SODIUM
     Indication: PULMONARY VENO-OCCLUSIVE DISEASE
  3. DEFITELIO [Suspect]
     Active Substance: DEFIBROTIDE SODIUM
     Indication: PROPHYLAXIS
     Dosage: 28 MG/KG (28 MG/KG, QD)
     Route: 065
     Dates: start: 20180305, end: 201803
  4. DESFERAL [Suspect]
     Active Substance: DEFEROXAMINE MESYLATE
     Indication: PRODUCT USED FOR UNKNOWN INDICATION
     Dosage: UNK
     Route: 065
  5. DEFITELIO [Suspect]
     Active Substance: DEFIBROTIDE SODIUM
     Indication: VENOOCCLUSIVE LIVER DISEASE
     Dosage: 25 MG/KG (25 MILLIGRAM/KILOGRAM/DAY)
     Route: 042
     Dates: start: 20180305, end: 20180318
  6. TIENAM [Suspect]
     Active Substance: CILASTATIN SODIUM\IMIPENEM
     Indication: SEPSIS
     Dosage: UNK
     Route: 042
     Dates: start: 20180307, end: 20180312
  7. TAZOCILLINE [Suspect]
     Active Substance: PIPERACILLIN SODIUM\TAZOBACTAM SODIUM
     Indication: DIARRHOEA
  8. TAZOCILLINE [Suspect]
     Active Substance: PIPERACILLIN SODIUM\TAZOBACTAM SODIUM
     Indication: PYREXIA
     Dosage: 4 G (4 G, QID)
     Route: 042
     Dates: start: 20180222, end: 20180302

REACTIONS (6)
  - Pulmonary toxicity [Fatal]
  - Off label use [Unknown]
  - Venoocclusive disease [Fatal]
  - Metrorrhagia [Unknown]
  - Multiple organ dysfunction syndrome [Fatal]
  - Hepatitis [Fatal]

NARRATIVE: CASE EVENT DATE: 20180305
